FAERS Safety Report 26137232 (Version 1)
Quarter: 2025Q4

REPORT INFORMATION
  Report Type: Spontaneous
  Country: BR (occurrence: BR)
  Receive Date: 20251209
  Receipt Date: 20251209
  Transmission Date: 20260118
  Serious: Yes (Other)
  Sender: PFIZER
  Company Number: BR-PFIZER INC-202500238942

PATIENT
  Age: 91 Year
  Sex: Female

DRUGS (2)
  1. BRAFTOVI [Suspect]
     Active Substance: ENCORAFENIB
     Indication: Malignant melanoma
     Dosage: UNK
     Dates: start: 20250101, end: 20251203
  2. MEKTOVI [Suspect]
     Active Substance: BINIMETINIB
     Indication: Malignant melanoma
     Dosage: UNK
     Dates: start: 20250101, end: 20251203

REACTIONS (3)
  - Atrial fibrillation [Recovered/Resolved with Sequelae]
  - Obesity [Recovered/Resolved with Sequelae]
  - Hypertension [Recovered/Resolved with Sequelae]
